FAERS Safety Report 4479908-7 (Version None)
Quarter: 2004Q4

REPORT INFORMATION
  Report Type: 
  Country: None (occurrence: None)
  Receive Date: 20041020
  Receipt Date: 20041011
  Transmission Date: 20050328
  Serious: Yes (Other)
  Sender: FDA-Public Use
  Company Number: PHFR2004GB03824

PATIENT
  Age: 55 Year
  Sex: Female

DRUGS (1)
  1. CLIMESSE [Suspect]
     Indication: MENOPAUSE
     Dosage: 2/0.7
     Route: 048
     Dates: start: 20040607, end: 20040816

REACTIONS (2)
  - CHEST PAIN [None]
  - PALPITATIONS [None]
